FAERS Safety Report 9991161 (Version 1)
Quarter: 2014Q1

REPORT INFORMATION
  Report Type: Report from Study
  Country: US (occurrence: US)
  Receive Date: 20140310
  Receipt Date: 20140310
  Transmission Date: 20141002
  Serious: No
  Sender: FDA-Public Use
  Company Number: US-ABBVIE-13P-163-1132841-00

PATIENT
  Age: 56 Year
  Sex: Female

DRUGS (12)
  1. HUMIRA [Suspect]
     Indication: RHEUMATOID ARTHRITIS
     Dates: start: 20130403
  2. LEVOTHYROXINE [Concomitant]
     Indication: HYPOTHYROIDISM
     Dates: start: 2010
  3. PREDNISONE [Concomitant]
     Indication: RHEUMATOID ARTHRITIS
  4. SEROQUEL [Concomitant]
     Indication: SCHIZOAFFECTIVE DISORDER
  5. NYSTATIN [Concomitant]
     Indication: CANDIDA INFECTION
     Dosage: 100,000/1 ML SUSPENSION (X 3-4 TIMES DAILY)
     Route: 048
     Dates: start: 2012
  6. EFFEXOR [Concomitant]
     Indication: DEPRESSION
  7. DITROPAN XL [Concomitant]
     Indication: INCONTINENCE
     Dates: start: 2013
  8. METHOTREXATE [Concomitant]
     Indication: RHEUMATOID ARTHRITIS
  9. FOSAMAX [Concomitant]
     Indication: OSTEOPOROSIS PROPHYLAXIS
  10. CALCIUM CARBONATE W/VITAMIN D [Concomitant]
     Indication: OSTEOPOROSIS PROPHYLAXIS
  11. VITAMIN D3 [Concomitant]
     Indication: VITAMIN SUPPLEMENTATION
  12. VITAMIN D3 [Concomitant]
     Indication: OSTEOPOROSIS PROPHYLAXIS

REACTIONS (2)
  - Nasal congestion [Not Recovered/Not Resolved]
  - Pain [Not Recovered/Not Resolved]
